FAERS Safety Report 15689639 (Version 1)
Quarter: 2018Q4

REPORT INFORMATION
  Report Type: Spontaneous
  Country: US (occurrence: US)
  Receive Date: 20181204
  Receipt Date: 20181204
  Transmission Date: 20190205
  Serious: Yes (Other)
  Sender: FDA-Public Use
  Company Number: None

PATIENT
  Age: 63 Year
  Sex: Female
  Weight: 54 kg

DRUGS (2)
  1. GENERIC DEXTROSE-SODIUM, DEXTROSE 10%/0.45% SALINE 1000ML 02/28/2021 [Suspect]
     Active Substance: DEXTROSE MONOHYDRATE\SODIUM CHLORIDE
     Indication: PORPHYRIA ACUTE
     Dosage: ?          QUANTITY:1 INFUSION 1000 ML;OTHER FREQUENCY:AS NEEDED PRN;?
     Route: 042
     Dates: start: 20181204, end: 20181204
  2. NATURE-THROID [Concomitant]
     Active Substance: THYROID, PORCINE

REACTIONS (6)
  - Tremor [None]
  - Feeling abnormal [None]
  - Disorientation [None]
  - Product complaint [None]
  - Therapeutic response changed [None]
  - Malaise [None]

NARRATIVE: CASE EVENT DATE: 20181204
